FAERS Safety Report 5179513-3 (Version None)
Quarter: 2006Q4

REPORT INFORMATION
  Report Type: 
  Country: None (occurrence: None)
  Receive Date: 20061211
  Receipt Date: 20061204
  Transmission Date: 20070319
  Serious: Yes (Other)
  Sender: FDA-Public Use
  Company Number: 2006SP007731

PATIENT
  Age: 56 Year
  Sex: Male

DRUGS (4)
  1. TEMODAL [Suspect]
     Indication: BRAIN NEOPLASM
     Dosage: 120 MG; QD; PO
     Route: 048
     Dates: start: 20061030, end: 20061122
  2. NAVOBAN [Concomitant]
  3. GASTER [Concomitant]
  4. DEPAKENE [Concomitant]

REACTIONS (3)
  - ALANINE AMINOTRANSFERASE INCREASED [None]
  - ASPARTATE AMINOTRANSFERASE INCREASED [None]
  - HEPATIC FUNCTION ABNORMAL [None]
